FAERS Safety Report 20711593 (Version 1)
Quarter: 2022Q2

REPORT INFORMATION
  Report Type: Spontaneous
  Country: IT (occurrence: IT)
  Receive Date: 20220414
  Receipt Date: 20220414
  Transmission Date: 20220720
  Serious: Yes (Hospitalization, Other)
  Sender: FDA-Public Use
  Company Number: IT-009507513-2204ITA001770

PATIENT
  Age: 81 Year
  Sex: Male

DRUGS (7)
  1. PEMETREXED [Suspect]
     Active Substance: PEMETREXED
     Indication: Lung adenocarcinoma stage IV
     Dosage: UNK UNK, UNKNOWN
     Route: 065
     Dates: start: 20200323
  2. PEMETREXED [Suspect]
     Active Substance: PEMETREXED
     Dosage: UNK UNK, UNKNOWN
     Route: 065
     Dates: start: 202007, end: 202011
  3. PEMBROLIZUMAB [Suspect]
     Active Substance: PEMBROLIZUMAB
     Indication: Lung adenocarcinoma stage IV
     Dosage: UNK UNK, UNKNOWN
     Route: 065
     Dates: start: 20200323
  4. PEMBROLIZUMAB [Suspect]
     Active Substance: PEMBROLIZUMAB
     Dosage: UNK UNK, UNKNOWN
     Route: 065
     Dates: start: 202007, end: 202011
  5. PEMBROLIZUMAB [Suspect]
     Active Substance: PEMBROLIZUMAB
     Dosage: UNK UNK, UNKNOWN
     Route: 065
     Dates: start: 202012, end: 202108
  6. CARBOPLATIN [Suspect]
     Active Substance: CARBOPLATIN
     Indication: Lung adenocarcinoma stage IV
     Dosage: UNK UNK, UNKNOWN
     Route: 065
     Dates: start: 20200323
  7. CARBOPLATIN [Suspect]
     Active Substance: CARBOPLATIN
     Dosage: UNK UNK, UNKNOWN
     Route: 065
     Dates: start: 202007, end: 202011

REACTIONS (10)
  - Haemoptysis [Recovered/Resolved]
  - Cardiac failure [Unknown]
  - Malignant neoplasm progression [Recovered/Resolved]
  - Malignant neoplasm progression [Unknown]
  - Bacterial sepsis [Recovered/Resolved]
  - Pancytopenia [Recovered/Resolved]
  - Atrial fibrillation [Unknown]
  - Asthenia [Unknown]
  - Dyspnoea [Unknown]
  - Anaemia [Unknown]

NARRATIVE: CASE EVENT DATE: 20200626
